FAERS Safety Report 14116119 (Version 2)
Quarter: 2017Q4

REPORT INFORMATION
  Report Type: Spontaneous
  Country: FR (occurrence: FR)
  Receive Date: 20171023
  Receipt Date: 20171110
  Transmission Date: 20180321
  Serious: Yes (Other)
  Sender: FDA-Public Use
  Company Number: FR-PFIZER INC-2017446611

PATIENT
  Age: 38 Year
  Sex: Male

DRUGS (13)
  1. CANNABIS [Suspect]
     Active Substance: CANNABIS SATIVA SUBSP. INDICA TOP
     Dosage: 2 TO 3 JOINTS DAILY
     Route: 055
  2. MIRTAZAPINE. [Concomitant]
     Active Substance: MIRTAZAPINE
     Indication: ANTIDEPRESSANT THERAPY
     Dosage: UNK
  3. CODOLIPRANE [Interacting]
     Active Substance: ACETAMINOPHEN\CODEINE PHOSPHATE
     Dosage: 2 TABLETS (800 MG OF PARACETAMOL AND 40 MG OF CODEINE)
     Dates: start: 20170523, end: 20170523
  4. XANAX [Suspect]
     Active Substance: ALPRAZOLAM
     Dosage: 6 TABLETS DAILY
     Route: 048
     Dates: start: 2002
  5. AMOXICILLIN TRIHYDRATE [Suspect]
     Active Substance: AMOXICILLIN
     Dosage: 10 DF, UNK
     Dates: start: 20170523, end: 20170523
  6. CODOLIPRANE [Interacting]
     Active Substance: ACETAMINOPHEN\CODEINE PHOSPHATE
     Dosage: 40 MG, ONCE DAILY
     Route: 048
  7. PRONTALGINE [Suspect]
     Active Substance: ACETAMINOPHEN\AMOBARBITAL\CAFFEINE\CODEINE PHOSPHATE
     Dosage: 80 MG, ONCE DAILY
     Route: 048
  8. PRONTALGINE [Suspect]
     Active Substance: ACETAMINOPHEN\AMOBARBITAL\CAFFEINE\CODEINE PHOSPHATE
     Dosage: 4 TABLETS (1 G OF PARACETAMOL AND 80 MG OF CODEINE)
     Dates: start: 20170523, end: 20170523
  9. PRONTALGINE [Suspect]
     Active Substance: ACETAMINOPHEN\AMOBARBITAL\CAFFEINE\CODEINE PHOSPHATE
     Dosage: UNK
  10. ECSTASY [Suspect]
     Active Substance: MIDOMAFETAMINE
     Dosage: UNK
  11. SUBUTEX [Interacting]
     Active Substance: BUPRENORPHINE HYDROCHLORIDE
     Dosage: UNK
     Route: 045
     Dates: start: 2002
  12. DOLIPRANE [Suspect]
     Active Substance: ACETAMINOPHEN
     Dosage: 4 G, UNK
     Dates: start: 20170523, end: 20170523
  13. TOBACCO [Suspect]
     Active Substance: TOBACCO LEAF
     Dosage: 10 CIGARETTES (ROLLED), DAILY
     Route: 055

REACTIONS (20)
  - Drug dependence [Recovering/Resolving]
  - Disease recurrence [Recovering/Resolving]
  - Overdose [Unknown]
  - Drug ineffective [Unknown]
  - Gamma-glutamyltransferase increased [Unknown]
  - Toxicity to various agents [Unknown]
  - Drug interaction [Unknown]
  - Drug withdrawal syndrome [Unknown]
  - Intentional product misuse [Unknown]
  - Disease recurrence [Recovered/Resolved]
  - Disease recurrence [Not Recovered/Not Resolved]
  - Alcohol abuse [Recovered/Resolved]
  - Seizure [Unknown]
  - Emphysema [Unknown]
  - White blood cell count increased [Unknown]
  - Drug abuse [Recovered/Resolved]
  - Lymphocytosis [Unknown]
  - Drug use disorder [Not Recovered/Not Resolved]
  - Toothache [Unknown]
  - Activated partial thromboplastin time prolonged [Unknown]

NARRATIVE: CASE EVENT DATE: 2002
